FAERS Safety Report 25251098 (Version 1)
Quarter: 2025Q2

REPORT INFORMATION
  Report Type: Spontaneous
  Country: US (occurrence: US)
  Receive Date: 20250429
  Receipt Date: 20250429
  Transmission Date: 20250717
  Serious: Yes (Other)
  Sender: AMGEN
  Company Number: US-AMGEN-USASP2025081790

PATIENT

DRUGS (3)
  1. BEVACIZUMAB [Suspect]
     Active Substance: BEVACIZUMAB
     Indication: Lung neoplasm malignant
     Route: 065
  2. TRASTUZUMAB [Suspect]
     Active Substance: TRASTUZUMAB
     Indication: Breast cancer
     Route: 065
  3. SOTORASIB [Suspect]
     Active Substance: SOTORASIB
     Indication: Lung neoplasm malignant
     Route: 065

REACTIONS (5)
  - Neutropenia [Unknown]
  - Pneumonia [Unknown]
  - Prostatitis [Unknown]
  - Pyrexia [Unknown]
  - Urinary tract infection [Unknown]
